FAERS Safety Report 7363309-8 (Version None)
Quarter: 2011Q1

REPORT INFORMATION
  Report Type: 
  Country: None (occurrence: None)
  Receive Date: 20110321
  Receipt Date: 20110310
  Transmission Date: 20110831
  Serious: Yes (Hospitalization)
  Sender: FDA-Public Use
  Company Number: DE-BAXTER-2011BH000840

PATIENT
  Sex: Male
  Weight: 90 kg

DRUGS (2)
  1. GAMMAGARD LIQUID [Suspect]
     Route: 065
  2. GAMMAGARD LIQUID [Suspect]
     Indication: IMMUNOGLOBULIN THERAPY
     Route: 042
     Dates: start: 20110111, end: 20110111

REACTIONS (2)
  - CHILLS [None]
  - PNEUMONIA [None]
